FAERS Safety Report 8157994-0 (Version None)
Quarter: 2012Q1

REPORT INFORMATION
  Report Type: 
  Country: None (occurrence: None)
  Receive Date: 20120222
  Receipt Date: 20120215
  Transmission Date: 20120608
  Serious: Yes (Hospitalization, Disabling)
  Sender: FDA-Public Use
  Company Number: PHHO2011CA019601

PATIENT
  Sex: Male
  Weight: 61.8 kg

DRUGS (11)
  1. BLINDED NO TREATMENT RECEIVED [Suspect]
     Indication: CARDIOVASCULAR DISORDER
     Dosage: ACTIVE RUN IN PHASE
  2. BLINDED ALISKIREN [Suspect]
     Indication: CARDIOVASCULAR DISORDER
     Dosage: ACTIVE RUN IN PHASE
  3. VALSARTAN [Suspect]
     Dosage: 160 MG, QD
  4. ATORVASTATIN [Concomitant]
  5. BLINDED PLACEBO [Suspect]
     Indication: CARDIOVASCULAR DISORDER
     Dosage: ACTIVE RUN IN PHASE
  6. HYDROCHLOROTHIAZIDE [Suspect]
     Dosage: 25 MG, UNK
  7. AMLODIPINE [Suspect]
     Indication: CARDIOVASCULAR DISORDER
     Dosage: ACTIVE RUN IN PHASE
  8. AMLODIPINE [Suspect]
     Indication: CARDIOVASCULAR DISORDER
     Dosage: 5 MG, UNK
     Dates: start: 20111001, end: 20111008
  9. ESIDRIX [Suspect]
     Indication: CARDIOVASCULAR DISORDER
     Dosage: ACTIVE RUN IN PHASE
  10. ALISKIREN [Suspect]
     Indication: CARDIOVASCULAR DISORDER
     Dosage: 150 MG, UNK
     Dates: start: 20111001, end: 20111108
  11. ASPIRIN [Concomitant]

REACTIONS (2)
  - CEREBRAL HYPOPERFUSION [None]
  - HYPOTENSION [None]
